FAERS Safety Report 14045892 (Version 2)
Quarter: 2017Q4

REPORT INFORMATION
  Report Type: Spontaneous
  Country: US (occurrence: US)
  Receive Date: 20171005
  Receipt Date: 20171123
  Transmission Date: 20180321
  Serious: No
  Sender: FDA-Public Use
  Company Number: US-PFIZER INC-2017426218

PATIENT
  Age: 76 Year
  Sex: Female

DRUGS (5)
  1. AMLODIPINE B [Concomitant]
     Dosage: 5 MG, UNK
  2. LISINOPRIL. [Concomitant]
     Active Substance: LISINOPRIL
     Dosage: 40 MG, UNK
  3. FENOFIBRATE. [Concomitant]
     Active Substance: FENOFIBRATE
     Dosage: 48 MG, UNK
  4. VITAMIN B12 [Concomitant]
     Active Substance: CYANOCOBALAMIN
     Dosage: 250 UG, UNK
  5. SUTENT [Suspect]
     Active Substance: SUNITINIB MALATE
     Indication: TRIGEMINAL NEURALGIA
     Dosage: 37.5 MG, DAILY (1 CAPSULE BY MOUTH EVERY DAY)
     Route: 048
     Dates: start: 201709

REACTIONS (5)
  - Diarrhoea [Not Recovered/Not Resolved]
  - Anxiety [Not Recovered/Not Resolved]
  - Product use in unapproved indication [Unknown]
  - Depression [Not Recovered/Not Resolved]
  - Insomnia [Not Recovered/Not Resolved]

NARRATIVE: CASE EVENT DATE: 201709
